FAERS Safety Report 15806066 (Version 1)
Quarter: 2019Q1

REPORT INFORMATION
  Report Type: Spontaneous
  Country: DK (occurrence: DK)
  Receive Date: 20190110
  Receipt Date: 20190110
  Transmission Date: 20190417
  Serious: Yes (Hospitalization)
  Sender: FDA-Public Use
  Company Number: DK-SA-2019SA005096

PATIENT
  Age: 23 Year
  Sex: Female

DRUGS (8)
  1. MIRENA [Concomitant]
     Active Substance: LEVONORGESTREL
     Indication: CONTRACEPTION
     Dosage: STYRKE: 20 MIKROGRAM/ 24 TIMER.
     Route: 015
     Dates: start: 20180213
  2. DERMOVAT [CLOBETASOL PROPIONATE] [Concomitant]
     Indication: ECZEMA
     Dosage: 1 DF, QD;STYRKE: 0,5 MG/G.
     Route: 003
     Dates: start: 20180214
  3. MOTILIUM M [Concomitant]
     Indication: NAUSEA
     Dosage: 30 MG, QD;STYRKE: 10 MG.
     Route: 048
     Dates: start: 20181130
  4. DUPIXENT [Suspect]
     Active Substance: DUPILUMAB
     Indication: DERMATITIS ATOPIC
     Dosage: 300 MG, QOW;STYRKE: 300 MG
     Route: 058
     Dates: start: 201805, end: 20181207
  5. LOCOID [Concomitant]
     Active Substance: HYDROCORTISONE BUTYRATE
     Indication: ECZEMA
     Dosage: 1 DF, QD;STYRKE: 0,1 %
     Route: 003
     Dates: start: 20140502
  6. TACROLIMUS. [Concomitant]
     Active Substance: TACROLIMUS
     Indication: ECZEMA
     Dosage: 2 DF, QD;STYRKE: 0,1 %
     Route: 003
     Dates: start: 20140919
  7. BETNOVAT [BETAMETHASONE VALERATE] [Concomitant]
     Indication: ECZEMA
     Dosage: 1 DF, QD;STYRKE: 1 MG/G
     Route: 003
     Dates: start: 20180214
  8. IMUREL [AZATHIOPRINE] [Concomitant]
     Active Substance: AZATHIOPRINE
     Indication: DERMATITIS ATOPIC
     Dosage: 100 MG, QD;STYRKE: 50 MG.
     Route: 048
     Dates: start: 20181025

REACTIONS (1)
  - Headache [Unknown]

NARRATIVE: CASE EVENT DATE: 201807
